FAERS Safety Report 5156624-X (Version None)
Quarter: 2006Q4

REPORT INFORMATION
  Report Type: 
  Country: None (occurrence: None)
  Receive Date: 20061115
  Receipt Date: 20061101
  Transmission Date: 20070319
  Serious: No
  Sender: FDA-Public Use
  Company Number: 2006-149900-NL

PATIENT
  Age: 25 Year
  Sex: Female
  Weight: 54.4 kg

DRUGS (1)
  1. NUVARING [Suspect]
     Indication: CONTRACEPTION
     Dosage: VAGINAL, 3 WEEKS IN / 1 WEEK OUT
     Route: 065
     Dates: start: 20060501

REACTIONS (10)
  - ARTHRALGIA [None]
  - BREAST SWELLING [None]
  - BREAST TENDERNESS [None]
  - CHILLS [None]
  - KIDNEY INFECTION [None]
  - METRORRHAGIA [None]
  - MIGRAINE [None]
  - PAIN [None]
  - PYREXIA [None]
  - TREATMENT NONCOMPLIANCE [None]
